FAERS Safety Report 8977773 (Version 1)
Quarter: 2012Q4

REPORT INFORMATION
  Report Type: 
  Country: US (occurrence: US)
  Receive Date: 20121219
  Receipt Date: 20121219
  Transmission Date: 20130627
  Serious: Yes (Other)
  Sender: FDA-Public Use
  Company Number: US-BAYER-2012-132247

PATIENT
  Age: 46 Year
  Sex: Female

DRUGS (6)
  1. YASMIN [Suspect]
  2. ASPIRIN [Concomitant]
  3. CARDIZEM [Concomitant]
  4. DOSTINEX [Concomitant]
  5. DIAZAN [Concomitant]
  6. OTHER HORMONES [Concomitant]

REACTIONS (1)
  - Deep vein thrombosis [None]
